FAERS Safety Report 5388876-5 (Version None)
Quarter: 2007Q3

REPORT INFORMATION
  Report Type: 
  Country: None (occurrence: None)
  Receive Date: 20070713
  Receipt Date: 20070706
  Transmission Date: 20080115
  Serious: Yes (Hospitalization, Other)
  Sender: FDA-Public Use
  Company Number: 163-21880-07040854

PATIENT
  Age: 78 Year

DRUGS (12)
  1. REVLIMID [Suspect]
     Indication: MULTIPLE MYELOMA
     Dosage: 25 MG, QD X 21 DAYS THEN 7 OFF, ORAL
     Route: 048
     Dates: start: 20070326, end: 20070515
  2. DUONEB [Concomitant]
  3. DRUAGESIC (FENTANYL) [Concomitant]
  4. PERCOCET [Concomitant]
  5. ATENOLOL [Concomitant]
  6. LASIX [Concomitant]
  7. PLAVIX [Concomitant]
  8. PROTONIX [Concomitant]
  9. ALLOPURINOL [Concomitant]
  10. ASPIRIN TAB [Concomitant]
  11. ZOCOR [Concomitant]
  12. NORVASC [Concomitant]

REACTIONS (5)
  - APHAGIA [None]
  - ASTHENIA [None]
  - DEHYDRATION [None]
  - DIZZINESS [None]
  - STOMATITIS [None]
